FAERS Safety Report 6461765-0 (Version None)
Quarter: 2009Q4

REPORT INFORMATION
  Report Type: 
  Country: None (occurrence: None)
  Receive Date: 20091130
  Receipt Date: 20091117
  Transmission Date: 20100525
  Serious: Yes (Other)
  Sender: FDA-Public Use
  Company Number: PHEH2009US13348

PATIENT
  Age: 64 Year
  Sex: Female
  Weight: 111.57 kg

DRUGS (5)
  1. DIOVAN HCT [Suspect]
     Dosage: 160/25 ONCE A DAY
     Route: 048
     Dates: start: 20090826, end: 20090909
  2. CRESTOR [Concomitant]
     Indication: HYPERLIPIDAEMIA
     Dosage: 10 MG, QD
     Route: 048
  3. JANUVIA [Concomitant]
     Indication: DIABETES MELLITUS
     Dosage: 100 MG, QD
     Route: 048
  4. TOPROL-XL [Concomitant]
     Indication: HYPERTENSION
     Dosage: 100 MG, QD
     Route: 048
  5. DETROL [Concomitant]
     Dosage: 4 MG, QD
     Route: 048

REACTIONS (1)
  - WHEEZING [None]
